FAERS Safety Report 5883065-X (Version None)
Quarter: 2008Q3

REPORT INFORMATION
  Report Type: 
  Country: None (occurrence: None)
  Receive Date: 20080913
  Receipt Date: 20080827
  Transmission Date: 20090109
  Serious: No
  Sender: FDA-Public Use
  Company Number: US-ABBOTT-08P-163-0472879-00

PATIENT
  Sex: Female
  Weight: 95.34 kg

DRUGS (17)
  1. HUMIRA [Suspect]
     Indication: CROHN'S DISEASE
     Route: 050
     Dates: start: 20080729
  2. HUMIRA [Suspect]
     Indication: ARTHRITIS
     Dosage: PEN
     Route: 050
     Dates: start: 20080801
  3. HUMIRA [Suspect]
     Dosage: PEN
     Route: 050
     Dates: start: 20080805
  4. HUMIRA [Suspect]
     Dosage: PEN
     Route: 050
     Dates: start: 20080808
  5. HUMIRA [Suspect]
     Dosage: PEN
     Route: 050
     Dates: start: 20080819
  6. OXYCODONE HCL [Concomitant]
     Indication: PAIN
     Route: 048
  7. PREGABALIN [Concomitant]
     Indication: FIBROMYALGIA
     Route: 048
  8. PREGABALIN [Concomitant]
     Indication: NECK PAIN
  9. PREGABALIN [Concomitant]
     Indication: PAIN
  10. PRONEPHAZINE [Concomitant]
     Indication: NAUSEA
     Dosage: 1 IN 6 HOURS, AS REQUIRED
     Route: 048
  11. METRONIDAZOLE [Concomitant]
     Indication: ANTIBIOTIC PROPHYLAXIS
     Route: 048
  12. OMEPRAZOLE SODIUM [Concomitant]
     Indication: ANTACID THERAPY
     Route: 048
  13. METHOTREXATE [Concomitant]
     Indication: CROHN'S DISEASE
     Route: 048
     Dates: start: 20080729
  14. METHOTREXATE [Concomitant]
     Indication: ARTHRITIS
  15. AMBIEN [Concomitant]
     Indication: INSOMNIA
     Dosage: AT BEDTIME, AS REQUIRED
     Route: 048
  16. DULOXETINE HYDROCHLORIDE [Concomitant]
     Indication: ANXIETY
     Route: 048
     Dates: start: 20080703
  17. DULOXETINE HYDROCHLORIDE [Concomitant]
     Indication: DEPRESSION

REACTIONS (7)
  - ABDOMINAL PAIN [None]
  - CROHN'S DISEASE [None]
  - DIARRHOEA [None]
  - GASTROINTESTINAL INFLAMMATION [None]
  - GASTROINTESTINAL OEDEMA [None]
  - MUSCLE SPASMS [None]
  - VOMITING [None]
